FAERS Safety Report 14799495 (Version 1)
Quarter: 2018Q2

REPORT INFORMATION
  Report Type: Spontaneous
  Country: US (occurrence: US)
  Receive Date: 20180416
  Receipt Date: 20180416
  Transmission Date: 20180711
  Serious: No
  Sender: FDA-Public Use
  Company Number: None

PATIENT
  Age: 40 Year
  Sex: Female

DRUGS (1)
  1. HUMIRA [Suspect]
     Active Substance: ADALIMUMAB
     Indication: CROHN^S DISEASE
     Dosage: 160 MG DAY 1, 80 MG DAY 15, THEN 40 MG; AS DIRECTED; SQ
     Route: 058
     Dates: start: 20180409

REACTIONS (3)
  - Rhinorrhoea [None]
  - Paraesthesia [None]
  - Oropharyngeal pain [None]

NARRATIVE: CASE EVENT DATE: 20180409
